FAERS Safety Report 5046651-5 (Version None)
Quarter: 2006Q3

REPORT INFORMATION
  Report Type: 
  Country: None (occurrence: None)
  Receive Date: 20060710
  Receipt Date: 20060629
  Transmission Date: 20061208
  Serious: Yes (Hospitalization)
  Sender: FDA-Public Use
  Company Number: US-BRISTOL-MYERS SQUIBB COMPANY-13428404

PATIENT
  Age: 70 Year
  Sex: Male

DRUGS (13)
  1. CARBOPLATIN [Suspect]
     Indication: NEOPLASM MALIGNANT
  2. TAXOL [Suspect]
     Indication: NEOPLASM MALIGNANT
  3. ALPRAZOLAM [Suspect]
     Indication: ANXIETY
  4. ATIVAN [Suspect]
     Indication: ANXIETY
  5. ASPIRIN [Concomitant]
     Dates: start: 20000214, end: 20060531
  6. LUPRON [Concomitant]
     Dates: start: 20040513
  7. NILANDRON [Concomitant]
     Dates: start: 20040513
  8. TOPROL-XL [Concomitant]
  9. FOSAMAX [Concomitant]
     Dates: start: 20040513
  10. TRICOR [Concomitant]
     Dates: start: 20040514
  11. LOVASTATIN [Concomitant]
     Dates: start: 20040504
  12. ASCORBIC ACID [Concomitant]
     Dates: start: 20040514, end: 20060531
  13. NORVASC [Concomitant]
     Dates: start: 20060420

REACTIONS (4)
  - ANXIETY [None]
  - DYSPNOEA [None]
  - FATIGUE [None]
  - HYPOTENSION [None]
